FAERS Safety Report 9559299 (Version 1)
Quarter: 2013Q3

REPORT INFORMATION
  Report Type: Report from Study
  Country: CA (occurrence: CA)
  Receive Date: 20130927
  Receipt Date: 20130927
  Transmission Date: 20140515
  Serious: Yes (Hospitalization)
  Sender: FDA-Public Use
  Company Number: PHHY2013CA107387

PATIENT
  Sex: Female

DRUGS (2)
  1. ACLASTA [Suspect]
     Indication: OSTEOPOROSIS
     Dosage: UNK UKN, UNK
     Dates: start: 20110811
  2. ACLASTA [Suspect]
     Dosage: UNK UKN, UNK
     Dates: start: 20120814

REACTIONS (3)
  - Fall [Unknown]
  - Fracture [Unknown]
  - Abscess oral [Unknown]
